FAERS Safety Report 5192358-3 (Version None)
Quarter: 2006Q4

REPORT INFORMATION
  Report Type: 
  Country: None (occurrence: None)
  Receive Date: 20061227
  Receipt Date: 20061212
  Transmission Date: 20070319
  Serious: Yes (Hospitalization)
  Sender: FDA-Public Use
  Company Number: AU-PFIZER INC-2006153302

PATIENT
  Sex: Male
  Weight: 85 kg

DRUGS (2)
  1. SU-011,248 [Suspect]
     Indication: RENAL CELL CARCINOMA STAGE UNSPECIFIED
     Route: 048
     Dates: start: 20061127, end: 20061211
  2. ATENOLOL [Concomitant]
     Route: 048

REACTIONS (2)
  - PYREXIA [None]
  - RENAL FAILURE ACUTE [None]
